FAERS Safety Report 23579987 (Version 1)
Quarter: 2024Q1

REPORT INFORMATION
  Report Type: Report from Study
  Country: EG (occurrence: EG)
  Receive Date: 20240229
  Receipt Date: 20240229
  Transmission Date: 20240410
  Serious: Yes (Other)
  Sender: FDA-Public Use
  Company Number: EG-SANDOZ-SDZ2023EG008342

PATIENT
  Sex: Male
  Weight: 35 kg

DRUGS (3)
  1. NORDITROPIN [Suspect]
     Active Substance: SOMATROPIN
     Indication: Growth hormone deficiency
     Dosage: UNK
     Route: 058
     Dates: start: 202204, end: 202212
  2. OMNITROPE [Suspect]
     Active Substance: SOMATROPIN
     Indication: Growth hormone deficiency
     Dosage: 1.3 MG/DAY, DRUG WAS STARTED 2 WEEKS AGO (STRENGTH: 5MG/1.5 ML)
     Route: 058
     Dates: start: 202212
  3. OMNITROPE [Suspect]
     Active Substance: SOMATROPIN
     Dosage: UNK
     Route: 058
     Dates: start: 202301, end: 20230717

REACTIONS (8)
  - Growth retardation [Not Recovered/Not Resolved]
  - Injection site discolouration [Not Recovered/Not Resolved]
  - Injection site pain [Recovered/Resolved]
  - Product dose omission issue [Not Recovered/Not Resolved]
  - Device defective [Unknown]
  - Drug administered in wrong device [Unknown]
  - Wrong technique in device usage process [Unknown]
  - Drug delivery system issue [Recovered/Resolved]
